FAERS Safety Report 4453985-1 (Version None)
Quarter: 2004Q3

REPORT INFORMATION
  Report Type: 
  Country: None (occurrence: None)
  Receive Date: 20040920
  Receipt Date: 20040910
  Transmission Date: 20050211
  Serious: Yes (Other)
  Sender: FDA-Public Use
  Company Number: AU-GLAXOSMITHKLINE-B0345610A

PATIENT
  Sex: Male

DRUGS (2)
  1. ZYBAN [Suspect]
     Dosage: 2TAB PER DAY
     Route: 065
     Dates: start: 20040905
  2. NO CONCURRENT MEDICATION [Concomitant]

REACTIONS (4)
  - BRADYPHRENIA [None]
  - DIZZINESS [None]
  - SYNCOPE [None]
  - VISION BLURRED [None]
